FAERS Safety Report 9553661 (Version 1)
Quarter: 2013Q3

REPORT INFORMATION
  Report Type: Spontaneous
  Country: US (occurrence: US)
  Receive Date: 20130925
  Receipt Date: 20130925
  Transmission Date: 20140515
  Serious: No
  Sender: FDA-Public Use
  Company Number: US-BAYER-2013-116097

PATIENT
  Sex: Male

DRUGS (2)
  1. ALEVE CAPLET [Suspect]
     Indication: NERVE INJURY
     Dosage: 3 DF, ONCE
  2. ALEVE CAPLET [Suspect]
     Indication: PAIN

REACTIONS (1)
  - Incorrect dose administered [None]
